FAERS Safety Report 23657080 (Version 3)
Quarter: 2024Q3

REPORT INFORMATION
  Report Type: Report from Study
  Country: IL (occurrence: IL)
  Receive Date: 20240321
  Receipt Date: 20240724
  Transmission Date: 20241016
  Serious: No
  Sender: UCB
  Company Number: IL-UCBSA-2023025477

PATIENT
  Age: 10 Year
  Sex: Male

DRUGS (5)
  1. FENFLURAMINE HYDROCHLORIDE [Suspect]
     Active Substance: FENFLURAMINE HYDROCHLORIDE
     Indication: Lennox-Gastaut syndrome
     Dosage: 2.4 MILLIGRAM, 2X/DAY (BID) (WEEK 1)
     Dates: start: 20230515
  2. FENFLURAMINE HYDROCHLORIDE [Suspect]
     Active Substance: FENFLURAMINE HYDROCHLORIDE
     Indication: Off label use
     Dosage: 4.8 MILLIGRAM, 2X/DAY (BID) (WEEK 2)
     Dates: start: 2023
  3. FENFLURAMINE HYDROCHLORIDE [Suspect]
     Active Substance: FENFLURAMINE HYDROCHLORIDE
     Dosage: 8.4 MILLIGRAM, 2X/DAY (BID) (WEEK 3)
     Dates: start: 2023
  4. FENFLURAMINE HYDROCHLORIDE [Suspect]
     Active Substance: FENFLURAMINE HYDROCHLORIDE
     Dosage: 16.8 MILLIGRAM DAILY (7.6 ML TOTAL DAILY)
     Dates: start: 2023
  5. FENFLURAMINE HYDROCHLORIDE [Suspect]
     Active Substance: FENFLURAMINE HYDROCHLORIDE
     Dosage: 16 MILLIGRAM, DAILY
     Dates: start: 2023, end: 2024

REACTIONS (2)
  - Mitral valve incompetence [Unknown]
  - Off label use [Unknown]

NARRATIVE: CASE EVENT DATE: 20230515
